FAERS Safety Report 13829354 (Version 1)
Quarter: 2017Q3

REPORT INFORMATION
  Report Type: Spontaneous
  Country: US (occurrence: US)
  Receive Date: 20170803
  Receipt Date: 20170803
  Transmission Date: 20171127
  Serious: Yes (Hospitalization, Disabling)
  Sender: FDA-Public Use
  Company Number: US-PFIZER INC-2017333617

PATIENT
  Age: 53 Year
  Sex: Male
  Weight: 104 kg

DRUGS (1)
  1. RAPAMUNE [Suspect]
     Active Substance: SIROLIMUS
     Dosage: UNK
     Dates: start: 2003

REACTIONS (4)
  - Buttock injury [Not Recovered/Not Resolved]
  - Infection [Recovered/Resolved]
  - Abdominal wall wound [Not Recovered/Not Resolved]
  - Limb injury [Recovered/Resolved]
